FAERS Safety Report 5566714-5 (Version None)
Quarter: 2007Q4

REPORT INFORMATION
  Report Type: 
  Country: None (occurrence: None)
  Receive Date: 20071219
  Receipt Date: 20071218
  Transmission Date: 20080405
  Serious: Yes (Other)
  Sender: FDA-Public Use
  Company Number: A0699459A

PATIENT
  Age: 50 Year
  Sex: Male

DRUGS (1)
  1. TUMS ULTRA TABLETS, TROPICAL ASSORTED FRUITS [Suspect]
     Indication: DRUG USE FOR UNKNOWN INDICATION
     Route: 065

REACTIONS (1)
  - COAGULOPATHY [None]
